FAERS Safety Report 21012179 (Version 1)
Quarter: 2022Q2

REPORT INFORMATION
  Report Type: Other
  Country: CN (occurrence: None)
  Receive Date: 20220627
  Receipt Date: 20220627
  Transmission Date: 20220721
  Serious: Yes (Hospitalization)
  Sender: FDA-Public Use
  Company Number: CN-Navinta LLC-000278

PATIENT
  Age: 33 Year
  Sex: Female
  Weight: 100 kg

DRUGS (6)
  1. ROPIVACAINE [Interacting]
     Active Substance: ROPIVACAINE
     Indication: Anaesthesia
     Dosage: 7.5ML 0.75%
  2. LIDOCAINE [Interacting]
     Active Substance: LIDOCAINE
     Indication: Anaesthesia
     Dosage: 15 ML 2% LIDOCAINE
  3. SUFENTANIL [Concomitant]
     Active Substance: SUFENTANIL
     Indication: Anaesthesia
     Dosage: 5 MCG/ML
  4. SODIUM BICARBONATE [Concomitant]
     Active Substance: SODIUM BICARBONATE
     Indication: Anaesthesia
     Dosage: 3 ML 5% SODIUM BICARBONATE
  5. ROPIVACAINE [Interacting]
     Active Substance: ROPIVACAINE
     Indication: Anaesthesia
     Dosage: 7.5ML 0.75%
  6. ROPIVACAINE [Interacting]
     Active Substance: ROPIVACAINE
     Indication: Analgesic therapy
     Dosage: 0.09% ROPIVACAINE AT 6 ML/H FOR LABOR

REACTIONS (6)
  - Drug interaction [Unknown]
  - Product deposit [Unknown]
  - Exposure during pregnancy [Unknown]
  - Hypoaesthesia [Recovered/Resolved]
  - Asthenia [Recovered/Resolved]
  - Fall [Unknown]
